FAERS Safety Report 8927376 (Version 1)
Quarter: 2012Q4

REPORT INFORMATION
  Report Type: 
  Country: IL (occurrence: IL)
  Receive Date: 20121127
  Receipt Date: 20121127
  Transmission Date: 20130627
  Serious: Yes (Other)
  Sender: FDA-Public Use
  Company Number: PHHY2012IL106506

PATIENT
  Age: 76 Year
  Sex: Male

DRUGS (1)
  1. ZOMERA [Suspect]
     Indication: PROSTATE CANCER METASTATIC

REACTIONS (2)
  - Osteonecrosis of jaw [Not Recovered/Not Resolved]
  - Pain in jaw [Unknown]
